FAERS Safety Report 17004265 (Version 1)
Quarter: 2019Q4

REPORT INFORMATION
  Report Type: Spontaneous
  Country: GB (occurrence: GB)
  Receive Date: 20191107
  Receipt Date: 20191107
  Transmission Date: 20200122
  Serious: Yes (Life-Threatening, Disabling, Other)
  Sender: FDA-Public Use
  Company Number: GB-PFIZER INC-2019480969

PATIENT
  Age: 76 Year
  Sex: Male
  Weight: 83.4 kg

DRUGS (8)
  1. FLUTICASONE/SALMETEROL [Concomitant]
     Dosage: 4 DF, DAILY (250MCG/25MCG PER DOSE)
     Route: 055
  2. SALBUTAMOL [Concomitant]
     Active Substance: ALBUTEROL
     Dosage: 100 MICROGRAM, QID (ONE OR TWO PUFFS FOUR TIMES A DAY, AS NECESSARY)
     Route: 055
  3. GLICLAZIDE [Concomitant]
     Active Substance: GLICLAZIDE
     Dosage: 160 MG, DAILY (WITH BREAKFAST)
     Route: 065
  4. CETIRIZINE [Concomitant]
     Active Substance: CETIRIZINE HYDROCHLORIDE
     Indication: DERMATITIS ALLERGIC
     Dosage: 10 MILLIGRAM, QD (ONE TO BE TAKEN DAILY.)
     Route: 065
  5. FUROSEMIDE. [Suspect]
     Active Substance: FUROSEMIDE
     Dosage: 60 MILLIGRAM, BID (TWO TO BE TAKEN IN MORNING AND ONE IN THE EVENING)
     Route: 065
  6. PAMSVAX [Suspect]
     Active Substance: TAMSULOSIN HYDROCHLORIDE
     Dosage: 400 UG, DAILY
     Route: 065
  7. SPIRIVA [Concomitant]
     Active Substance: TIOTROPIUM BROMIDE MONOHYDRATE
     Dosage: 5 UG, DAILY  (PUFFS)
     Route: 055
  8. APIXABAN [Suspect]
     Active Substance: APIXABAN
     Indication: CEREBROVASCULAR ACCIDENT PROPHYLAXIS
     Dosage: 5 MILLIGRAM, DAILY
     Route: 065
     Dates: start: 2016

REACTIONS (8)
  - Swollen tongue [Not Recovered/Not Resolved]
  - Urine abnormality [Not Recovered/Not Resolved]
  - Device malfunction [Not Recovered/Not Resolved]
  - Urinary sediment [Not Recovered/Not Resolved]
  - Skin reaction [Not Recovered/Not Resolved]
  - Dyspnoea [Not Recovered/Not Resolved]
  - Urine odour abnormal [Not Recovered/Not Resolved]
  - Lip swelling [Not Recovered/Not Resolved]

NARRATIVE: CASE EVENT DATE: 201802
